FAERS Safety Report 5939555-4 (Version None)
Quarter: 2008Q4

REPORT INFORMATION
  Report Type: 
  Country: None (occurrence: None)
  Receive Date: 20081029
  Receipt Date: 20081015
  Transmission Date: 20090506
  Serious: Yes (Hospitalization, Other)
  Sender: FDA-Public Use
  Company Number: 100#03#2008-05214

PATIENT
  Age: 38 Year
  Sex: Male

DRUGS (3)
  1. ERYTHROMYCIN [Suspect]
     Indication: EAR INFECTION
     Dosage: 500 MG FOUR TIMES DAILY ORAL
     Route: 048
     Dates: start: 20080929, end: 20081001
  2. CODEINE PHOSPHATE (CODEINE) [Concomitant]
  3. IBUPROFEN [Concomitant]

REACTIONS (3)
  - ABDOMINAL PAIN [None]
  - JAUNDICE CHOLESTATIC [None]
  - VOMITING [None]
